FAERS Safety Report 17930726 (Version 2)
Quarter: 2020Q4

REPORT INFORMATION
  Report Type: Other
  Country: CA (occurrence: CA)
  Receive Date: 20200623
  Receipt Date: 20201211
  Transmission Date: 20210113
  Serious: Yes (Hospitalization, Other)
  Sender: FDA-Public Use
  Company Number: CA-VALIDUS PHARMACEUTICALS LLC-CA-2020VAL000492

PATIENT

DRUGS (5)
  1. LASIX [Suspect]
     Active Substance: FUROSEMIDE
     Indication: PRODUCT USED FOR UNKNOWN INDICATION
     Dosage: UNK
     Route: 042
  2. NUCALA [Suspect]
     Active Substance: MEPOLIZUMAB
     Indication: ASTHMA
     Dosage: 100 MG, QM
     Route: 042
     Dates: start: 20190821
  3. NUCALA [Suspect]
     Active Substance: MEPOLIZUMAB
     Dosage: 100 MG, QM
     Route: 042
     Dates: start: 20191119
  4. NUCALA [Suspect]
     Active Substance: MEPOLIZUMAB
     Dosage: 100 MG, QM
     Route: 042
     Dates: start: 20191016
  5. NUCALA [Suspect]
     Active Substance: MEPOLIZUMAB
     Indication: PRODUCT USED FOR UNKNOWN INDICATION
     Dosage: 100 MG, QM
     Route: 042
     Dates: start: 20190918

REACTIONS (12)
  - Malaise [Unknown]
  - Pyrexia [Unknown]
  - Blood creatinine increased [Unknown]
  - Dyspnoea [Unknown]
  - Hospitalisation [Unknown]
  - Dizziness [Unknown]
  - Respiratory tract congestion [Unknown]
  - Renal impairment [Unknown]
  - Chills [Unknown]
  - Cardiac failure congestive [Unknown]
  - Nausea [Unknown]
  - Fluid retention [Unknown]

NARRATIVE: CASE EVENT DATE: 201909
